FAERS Safety Report 22707095 (Version 4)
Quarter: 2025Q2

REPORT INFORMATION
  Report Type: Report from Study
  Country: CA (occurrence: CA)
  Receive Date: 20230714
  Receipt Date: 20250520
  Transmission Date: 20250717
  Serious: Yes (Other)
  Sender: TAKEDA
  Company Number: CA-TAKEDA-2018TUS007178

PATIENT
  Sex: Male

DRUGS (7)
  1. VEDOLIZUMAB [Suspect]
     Active Substance: VEDOLIZUMAB
     Indication: Colitis ulcerative
  2. VEDOLIZUMAB [Suspect]
     Active Substance: VEDOLIZUMAB
     Dosage: 300 MILLIGRAM, Q4WEEKS
     Dates: start: 201912
  3. ASPIRIN [Concomitant]
     Active Substance: ASPIRIN
     Dosage: UNK UNK, TID
  4. TYLENOL [Concomitant]
     Active Substance: ACETAMINOPHEN
  5. MIRTAZAPINE [Concomitant]
     Active Substance: MIRTAZAPINE
     Indication: Insomnia
  6. HERBALS\TURMERIC [Concomitant]
     Active Substance: HERBALS\TURMERIC
  7. ASACOL [Concomitant]
     Active Substance: MESALAMINE
     Dosage: 500 MILLIGRAM, TID

REACTIONS (5)
  - Haematochezia [Unknown]
  - Frequent bowel movements [Not Recovered/Not Resolved]
  - Drug level decreased [Unknown]
  - Impaired work ability [Unknown]
  - Social problem [Unknown]
